FAERS Safety Report 5639406-1 (Version None)
Quarter: 2008Q1

REPORT INFORMATION
  Report Type: 
  Country: None (occurrence: None)
  Receive Date: 20080226
  Receipt Date: 20080214
  Transmission Date: 20080703
  Serious: Yes (Hospitalization, Other)
  Sender: FDA-Public Use
  Company Number: US-PFIZER INC-2008014045

PATIENT
  Sex: Female

DRUGS (2)
  1. DILANTIN [Suspect]
  2. LYRICA [Suspect]

REACTIONS (2)
  - DRUG TOXICITY [None]
  - HYPERSOMNIA [None]
